FAERS Safety Report 8526826 (Version 9)
Quarter: 2013Q3

REPORT INFORMATION
  Report Type: Spontaneous
  Country: US (occurrence: US)
  Receive Date: 20120423
  Receipt Date: 20130807
  Transmission Date: 20140515
  Serious: Yes (Death, Hospitalization, Other)
  Sender: FDA-Public Use
  Company Number: US-009507513-1204USA02811

PATIENT
  Sex: Female
  Weight: 54.88 kg

DRUGS (5)
  1. FOSAMAX [Suspect]
     Indication: OSTEOPENIA
     Dosage: 70 MG, QW
     Route: 048
     Dates: start: 20010101, end: 20090131
  2. CALCIUM (UNSPECIFIED) [Concomitant]
     Dosage: UNK
     Dates: start: 1983
  3. VITAMIN D (UNSPECIFIED) [Concomitant]
     Dosage: UNK
     Dates: start: 1983
  4. ALENDRONATE SODIUM [Suspect]
     Dosage: 70 MG, UNK
  5. CORTICOSTEROIDS (UNSPECIFIED) [Concomitant]
     Indication: CROHN^S DISEASE

REACTIONS (54)
  - Open reduction of fracture [Recovered/Resolved]
  - Respiratory failure [Fatal]
  - Cardio-respiratory arrest [Fatal]
  - Convulsion [Unknown]
  - Brain injury [Fatal]
  - Cerebrovascular accident [Unknown]
  - Hypokalaemia [Unknown]
  - Cellulitis [Recovered/Resolved]
  - Ileectomy [Unknown]
  - Herpes zoster [Unknown]
  - Post herpetic neuralgia [Unknown]
  - Pancreatitis [Unknown]
  - Diverticulitis [Unknown]
  - Small intestinal resection [Unknown]
  - Deafness [Unknown]
  - Colectomy [Unknown]
  - Small intestinal obstruction [Unknown]
  - Small intestinal obstruction [Unknown]
  - Crohn^s disease [Unknown]
  - Immune thrombocytopenic purpura [Unknown]
  - Skin graft [Unknown]
  - Femur fracture [Recovered/Resolved]
  - Abdominal pain [Unknown]
  - Nausea [Unknown]
  - Vomiting [Unknown]
  - Musculoskeletal pain [Recovered/Resolved]
  - Low turnover osteopathy [Unknown]
  - Bursitis [Not Recovered/Not Resolved]
  - Gastrointestinal haemorrhage [Recovered/Resolved]
  - Osteoarthritis [Not Recovered/Not Resolved]
  - Iron deficiency anaemia [Unknown]
  - Thermal burn [Unknown]
  - Osteoporosis [Unknown]
  - Anxiety [Unknown]
  - Depression [Unknown]
  - Crohn^s disease [Not Recovered/Not Resolved]
  - Nasal polyps [Unknown]
  - Thrombocytopenia [Unknown]
  - Osteoarthritis [Unknown]
  - Hiatus hernia [Unknown]
  - Haemorrhoid operation [Unknown]
  - Anal fistula excision [Unknown]
  - Upper-airway cough syndrome [Unknown]
  - Blood potassium decreased [Unknown]
  - Spinal osteoarthritis [Unknown]
  - Spinal deformity [Unknown]
  - Vertebral foraminal stenosis [Unknown]
  - Cardiac disorder [Unknown]
  - Diverticulum [Unknown]
  - Sleep disorder [Unknown]
  - Gastrooesophageal reflux disease [Unknown]
  - Back pain [Not Recovered/Not Resolved]
  - Dizziness [Unknown]
  - Back pain [Not Recovered/Not Resolved]
